FAERS Safety Report 9559820 (Version 1)
Quarter: 2013Q3

REPORT INFORMATION
  Report Type: Spontaneous
  Country: GB (occurrence: None)
  Receive Date: 20130925
  Receipt Date: 20130925
  Transmission Date: 20140515
  Serious: Yes (Death, Hospitalization)
  Sender: FDA-Public Use
  Company Number: AUR-APL-2013-07782

PATIENT
  Age: 69 Year
  Sex: Female
  Weight: 120 kg

DRUGS (18)
  1. SERTRALINE(SERTRALINE) [Suspect]
     Indication: DEPRESSION
     Dates: start: 20130802, end: 20130818
  2. BISOPROLOL (BISOPROLOL) [Concomitant]
  3. CETIRIZINE (CETIRIZINE) [Concomitant]
  4. DIGOXIN (DIGOXIN) [Concomitant]
  5. DIHYDROCODEINE (DIHYDROCODEINE) [Concomitant]
  6. DOCUSATE (DOCUSATE) [Concomitant]
  7. FERROUS FUMARATE(FERROUS FUMARATE) [Concomitant]
  8. FOLIC ACID(FOLIC ACID) [Concomitant]
  9. LACTULOSE(LACTULOSE) [Concomitant]
  10. LEVOTHYROXINE(LEVOTHYROXINE) [Concomitant]
  11. METHOTREXATE(METHOTREXATE) [Concomitant]
  12. MOVELAT(MOVELAT?/004796/) [Concomitant]
  13. PARACETAMOL(PARACETAMOL) [Concomitant]
  14. PREDNISOLONE(PREDNISOLONE) [Concomitant]
  15. RABEPRAZOLE(RABEPRAZOLE) [Concomitant]
  16. SENNA(SENNA ALEXANDRINA) [Concomitant]
  17. SIMVASTATIN(SIMVASTATIN) [Concomitant]
  18. WARFARIN [Concomitant]

REACTIONS (7)
  - Toxic epidermal necrolysis [None]
  - Atrial fibrillation [None]
  - Dehydration [None]
  - Sepsis [None]
  - Lower respiratory tract infection [None]
  - Multi-organ failure [None]
  - Cardiovascular disorder [None]
